FAERS Safety Report 19826995 (Version 2)
Quarter: 2021Q3

REPORT INFORMATION
  Report Type: Spontaneous
  Country: JP (occurrence: JP)
  Receive Date: 20210914
  Receipt Date: 20210928
  Transmission Date: 20211014
  Serious: Yes (Hospitalization, Other)
  Sender: FDA-Public Use
  Company Number: JP-LUPIN PHARMACEUTICALS INC.-2021-17150

PATIENT
  Age: 66 Year
  Sex: Male
  Weight: 85.1 kg

DRUGS (12)
  1. PREDNISOLONE. [Suspect]
     Active Substance: PREDNISOLONE
     Indication: MYOCARDITIS
     Dosage: 80 MILLIGRAM (DAY 40?44:)
     Route: 042
  2. NIVOLUMAB [Suspect]
     Active Substance: NIVOLUMAB
     Indication: RENAL CANCER
     Dosage: UNK
     Route: 065
  3. PREDNISOLONE. [Suspect]
     Active Substance: PREDNISOLONE
     Indication: DISSEMINATED INTRAVASCULAR COAGULATION
     Dosage: 80 MILLIGRAM (DAY 34?36)
     Route: 042
  4. PREDNISOLONE. [Suspect]
     Active Substance: PREDNISOLONE
     Dosage: 25 MILLIGRAM (DAY 65?68)
     Route: 048
  5. INFLIXIMAB [Suspect]
     Active Substance: INFLIXIMAB
     Indication: IMMUNOSUPPRESSANT DRUG THERAPY
     Dosage: 425 MILLIGRAM ( 5 MG/KG) DAY 40
     Route: 065
  6. METHYLPREDNISOLONE. [Suspect]
     Active Substance: METHYLPREDNISOLONE
     Indication: SKIN DISORDER
     Dosage: 1000 MILLIGRAM ON DAY 37?39
     Route: 042
  7. IPILIMUMAB [Suspect]
     Active Substance: IPILIMUMAB
     Indication: RENAL CANCER
     Dosage: UNK
     Route: 065
  8. METHYLPREDNISOLONE. [Suspect]
     Active Substance: METHYLPREDNISOLONE
     Indication: DISSEMINATED INTRAVASCULAR COAGULATION
  9. INFLIXIMAB [Suspect]
     Active Substance: INFLIXIMAB
     Dosage: 400 MILLIGRAM ( 5 MG/KG) DAY 54
     Route: 065
  10. METHYLPREDNISOLONE. [Suspect]
     Active Substance: METHYLPREDNISOLONE
     Indication: MYOCARDITIS
  11. PREDNISOLONE. [Suspect]
     Active Substance: PREDNISOLONE
     Indication: SKIN DISORDER
     Dosage: 30 MILLIGRAM (DAY 61?64)
     Route: 048
  12. PREDNISOLONE. [Suspect]
     Active Substance: PREDNISOLONE
     Dosage: 20 MILLIGRAM (DAY 69?74)
     Route: 048

REACTIONS (3)
  - Cytomegalovirus infection [Recovered/Resolved]
  - Drug ineffective [Unknown]
  - Off label use [None]
